FAERS Safety Report 6739475-1 (Version None)
Quarter: 2010Q2

REPORT INFORMATION
  Report Type: 
  Country: None (occurrence: None)
  Receive Date: 20100521
  Receipt Date: 20100506
  Transmission Date: 20101027
  Serious: Yes (Other)
  Sender: FDA-Public Use
  Company Number: AMAG201000229

PATIENT
  Age: 40 Year
  Sex: Female

DRUGS (1)
  1. GASTROMARK [Suspect]
     Indication: NUCLEAR MAGNETIC RESONANCE IMAGING
     Dosage: 600 ML, SINGLE, ORAL
     Route: 048
     Dates: start: 20100421, end: 20100421

REACTIONS (4)
  - DIZZINESS [None]
  - FLUSHING [None]
  - HYPERTENSION [None]
  - NAUSEA [None]
